FAERS Safety Report 10193085 (Version 1)
Quarter: 2014Q2

REPORT INFORMATION
  Report Type: Report from Study
  Country: US (occurrence: US)
  Receive Date: 20140524
  Receipt Date: 20140524
  Transmission Date: 20141212
  Serious: Yes (Hospitalization)
  Sender: FDA-Public Use
  Company Number: US-TEVA-483085USA

PATIENT
  Age: 1 Year
  Sex: Female
  Weight: 11 kg

DRUGS (10)
  1. LESTAURTINIB [Suspect]
     Indication: ACUTE LYMPHOCYTIC LEUKAEMIA
     Dosage: LAST DOSE PRIOR TO EVENT 18-MAY-2014
     Dates: start: 20140327
  2. ETOPOSIDE [Suspect]
     Dosage: LAST DOSE PRIOR TO EVENT 09-MAY-2014
     Dates: start: 20140327
  3. MERCAPTOPURINE [Suspect]
     Dosage: LAST DOSE PRIOR TO EVENT 10-APR-2014
     Dates: start: 20140327
  4. METHOTREXATE [Suspect]
     Dosage: LAST DOSE PRIOR TO EVENT 04-APR-2014
     Dates: start: 20140327
  5. VINCRISTINE [Suspect]
     Dosage: LAST DOSE PRIOR TO EVENT 27-MAR-2014
     Dates: start: 20140327
  6. ACICLOVIR [Suspect]
  7. CYCLOPHOSPHAMIDE [Suspect]
     Dosage: LAST DOSE PRIOR TO EVENT 09-MAY-2014
     Dates: start: 20140327
  8. DEXAMETHASONE [Suspect]
     Dosage: LAST DOSE PRIOR TO EVENT 31-MAR-2014
     Dates: start: 20140327
  9. HYDROCORTISONE [Suspect]
     Dosage: LAST DOSE PRIOR TO EVENT 27-MAR-2014
     Route: 037
     Dates: start: 20140327
  10. IMMUNOGLOBULIN [Suspect]

REACTIONS (1)
  - Bacteraemia [Not Recovered/Not Resolved]
